FAERS Safety Report 18565949 (Version 2)
Quarter: 2020Q4

REPORT INFORMATION
  Report Type: Spontaneous
  Country: US (occurrence: US)
  Receive Date: 20201201
  Receipt Date: 20201217
  Transmission Date: 20210114
  Serious: No
  Sender: FDA-Public Use
  Company Number: US-ASTRAZENECA-2020SF54314

PATIENT
  Age: 27037 Day
  Sex: Male

DRUGS (11)
  1. METOPROLOL. [Suspect]
     Active Substance: METOPROLOL
     Indication: HYPERTENSION
     Route: 048
  2. ASPIRIN. [Concomitant]
     Active Substance: ASPIRIN
     Route: 048
  3. METFORMIN [Concomitant]
     Active Substance: METFORMIN HYDROCHLORIDE
     Route: 048
  4. DOXAZOSIN [Concomitant]
     Active Substance: DOXAZOSIN MESYLATE
     Route: 048
  5. OLMISARTAN [Concomitant]
     Dosage: EVERY DAY
     Route: 048
  6. PIOGLIPAZONE [Concomitant]
     Route: 048
  7. OMEPRAZOLE. [Suspect]
     Active Substance: OMEPRAZOLE
     Dosage: 20MEQ/ML EVERY DAY
     Route: 048
  8. BYDUREON BCISE [Suspect]
     Active Substance: EXENATIDE
     Indication: TYPE 2 DIABETES MELLITUS
     Route: 058
     Dates: start: 2018
  9. AMLODIPINE [Concomitant]
     Active Substance: AMLODIPINE BESYLATE
     Route: 048
  10. LATANOPROST. [Concomitant]
     Active Substance: LATANOPROST
     Indication: EYE DISORDER
     Dosage: AT NIGHT
     Route: 065
  11. ROSUVASTATIN. [Suspect]
     Active Substance: ROSUVASTATIN
     Route: 048

REACTIONS (4)
  - Injection site pain [Recovered/Resolved]
  - Skin mass [Recovered/Resolved]
  - Blood glucose increased [Not Recovered/Not Resolved]
  - Incorrect dose administered by device [Unknown]

NARRATIVE: CASE EVENT DATE: 20201104
